FAERS Safety Report 14605279 (Version 1)
Quarter: 2018Q1

REPORT INFORMATION
  Report Type: Spontaneous
  Country: US (occurrence: US)
  Receive Date: 20180306
  Receipt Date: 20180306
  Transmission Date: 20180509
  Serious: No
  Sender: FDA-Public Use
  Company Number: US-TARO-2017TAR00305

PATIENT
  Sex: Female
  Weight: 72.56 kg

DRUGS (3)
  1. ONE OTHER (UNSPECIFIED) MEDICATION [Concomitant]
  2. TERCONAZOLE VAGINAL CREAM 0.4% [Suspect]
     Active Substance: TERCONAZOLE
     Indication: INFECTION
     Dosage: UNK
     Dates: start: 201703
  3. TERCONAZOLE VAGINAL CREAM 0.4% [Suspect]
     Active Substance: TERCONAZOLE
     Dosage: 1X/DAY
     Route: 067
     Dates: start: 20170417

REACTIONS (2)
  - Vulvovaginal discomfort [Not Recovered/Not Resolved]
  - Incorrect drug administration duration [Unknown]

NARRATIVE: CASE EVENT DATE: 201703
